FAERS Safety Report 7996988-2 (Version None)
Quarter: 2011Q4

REPORT INFORMATION
  Report Type: 
  Country: None (occurrence: None)
  Receive Date: 20111221
  Receipt Date: 20111219
  Transmission Date: 20120403
  Serious: Yes (Life-Threatening)
  Sender: FDA-Public Use
  Company Number: PHEH2011US012059

PATIENT
  Sex: Male

DRUGS (1)
  1. EXJADE [Suspect]
     Indication: IRON OVERLOAD
     Dosage: 2250 MG, DAILY
     Route: 048
     Dates: start: 20101029, end: 20111004

REACTIONS (1)
  - TERMINAL STATE [None]
